FAERS Safety Report 9752044 (Version 1)
Quarter: 2013Q4

REPORT INFORMATION
  Report Type: Spontaneous
  Country: US (occurrence: None)
  Receive Date: 20131211
  Receipt Date: 20131211
  Transmission Date: 20140711
  Serious: Yes (Other)
  Sender: FDA-Public Use
  Company Number: None

PATIENT
  Age: 54 Year
  Sex: Male
  Weight: 80.29 kg

DRUGS (4)
  1. ETOPOSIDE [Suspect]
     Indication: SMALL CELL LUNG CANCER
     Dosage: DAYS 1,2,3 OF 28
     Route: 042
     Dates: start: 20131209
  2. CARBOPLATIN AUC 6 [Concomitant]
  3. ZOFRAN [Concomitant]
  4. DECADRON [Concomitant]

REACTIONS (3)
  - Feeling hot [None]
  - Dyspnoea [None]
  - Infusion related reaction [None]
